FAERS Safety Report 8296133-2 (Version None)
Quarter: 2012Q2

REPORT INFORMATION
  Report Type: 
  Country: None (occurrence: None)
  Receive Date: 20120418
  Receipt Date: 20120409
  Transmission Date: 20120825
  Serious: Yes (Death)
  Sender: FDA-Public Use
  Company Number: JP-GLAXOSMITHKLINE-B0761571A

PATIENT
  Sex: Male
  Weight: 71 kg

DRUGS (12)
  1. OMEPRAZOLE [Concomitant]
     Indication: PROPHYLAXIS AGAINST GASTROINTESTINAL ULCER
     Dosage: 20MG PER DAY
     Route: 048
     Dates: start: 20110821, end: 20111016
  2. METHOTREXATE [Concomitant]
     Route: 065
  3. OZEX [Concomitant]
     Indication: INFECTION PROPHYLAXIS
     Dosage: 150MG PER DAY
     Route: 048
     Dates: end: 20111016
  4. ALKERAN [Suspect]
     Indication: ALLOGENIC BONE MARROW TRANSPLANTATION THERAPY
     Dosage: 250MG PER DAY
     Route: 042
     Dates: start: 20111004, end: 20111004
  5. GRAN [Concomitant]
  6. PROGRAF [Concomitant]
     Route: 065
  7. TEICOPLANIN [Concomitant]
     Route: 042
  8. IMIPENEM AND CILASTATIN SODIUM [Concomitant]
  9. FLUDARA [Concomitant]
     Route: 065
  10. FRAGMIN [Concomitant]
     Indication: PROPHYLAXIS
     Dosage: 5000IU PER DAY
     Route: 042
     Dates: start: 20110929, end: 20111021
  11. ITRACONAZOLE [Concomitant]
     Indication: INFECTION PROPHYLAXIS
     Dosage: 200MG PER DAY
     Route: 048
     Dates: start: 20110929, end: 20111016
  12. ZOVIRAX [Concomitant]
     Indication: PROPHYLAXIS
     Route: 048
     Dates: start: 20110929, end: 20111016

REACTIONS (4)
  - ACUTE GRAFT VERSUS HOST DISEASE [None]
  - RASH [None]
  - SKIN EXFOLIATION [None]
  - GENERALISED ERYTHEMA [None]
